FAERS Safety Report 9531098 (Version 1)
Quarter: 2013Q3

REPORT INFORMATION
  Report Type: Spontaneous
  Country: US (occurrence: US)
  Receive Date: 20130918
  Receipt Date: 20130918
  Transmission Date: 20140515
  Serious: Yes (Hospitalization)
  Sender: FDA-Public Use
  Company Number: US-BAYER-2013-112645

PATIENT
  Age: 49 Year
  Sex: Female

DRUGS (6)
  1. YAZ [Suspect]
     Indication: CONTRACEPTION
  2. GIANVI [Suspect]
  3. TYLENOL #3 [Concomitant]
  4. LEVOTHYROXINE [Concomitant]
  5. ZOFRAN [Concomitant]
  6. VICODIN [Concomitant]

REACTIONS (1)
  - Pulmonary embolism [None]
